FAERS Safety Report 17613052 (Version 1)
Quarter: 2020Q2

REPORT INFORMATION
  Report Type: Spontaneous
  Country: NO (occurrence: NO)
  Receive Date: 20200401
  Receipt Date: 20200401
  Transmission Date: 20200713
  Serious: Yes (Other)
  Sender: FDA-Public Use
  Company Number: NO-009507513-2003NOR010103

PATIENT
  Age: 20 Year
  Sex: Male

DRUGS (2)
  1. PENICILLIN G SODIUM. [Suspect]
     Active Substance: PENICILLIN G SODIUM
     Indication: INFECTION
     Dosage: 5 X10^6 INTERNATIONAL UNITS (IU) (6 PER HOUR) (ALSO REPORTED AS DOSE UNKNOWN)
     Route: 042
     Dates: start: 20161214, end: 20170106
  2. CUBICIN [Suspect]
     Active Substance: DAPTOMYCIN
     Indication: INFECTION
     Dosage: 500 MILLIGRAM, QD. FORMULATION: POWDER FOR SOLUTION FOR INJECTION
     Route: 042
     Dates: start: 2017, end: 2017

REACTIONS (5)
  - Blood pressure decreased [Recovered/Resolved]
  - Rash [Recovered/Resolved]
  - Syncope [Recovered/Resolved]
  - Pruritus [Recovered/Resolved]
  - Bone marrow failure [Recovered/Resolved]

NARRATIVE: CASE EVENT DATE: 2017
